FAERS Safety Report 6111142-7 (Version None)
Quarter: 2009Q1

REPORT INFORMATION
  Report Type: 
  Country: None (occurrence: None)
  Receive Date: 20090311
  Receipt Date: 20090306
  Transmission Date: 20090719
  Serious: Yes (Hospitalization)
  Sender: FDA-Public Use
  Company Number: AU-ASTRAZENECA-2009AP01735

PATIENT
  Age: 26180 Day
  Sex: Male

DRUGS (4)
  1. SEROQUEL [Suspect]
     Indication: DEPRESSION
     Route: 048
  2. SEROQUEL [Suspect]
     Route: 048
     Dates: start: 20080101
  3. NARDIL [Concomitant]
     Indication: DEPRESSION
  4. THYROXIN [Concomitant]

REACTIONS (1)
  - PULMONARY EMBOLISM [None]
